FAERS Safety Report 24913621 (Version 3)
Quarter: 2025Q1

REPORT INFORMATION
  Report Type: Report from Study
  Country: US (occurrence: US)
  Receive Date: 20250201
  Receipt Date: 20250225
  Transmission Date: 20250409
  Serious: Yes (Life-Threatening, Hospitalization, Other)
  Sender: UNITED THERAPEUTICS
  Company Number: US-UNITED THERAPEUTICS-UNT-2025-003310

PATIENT
  Sex: Male
  Weight: 58.957 kg

DRUGS (13)
  1. TREPROSTINIL SODIUM [Suspect]
     Active Substance: TREPROSTINIL SODIUM
     Indication: Pulmonary hypertension
     Route: 041
  2. ORENITRAM [Suspect]
     Active Substance: TREPROSTINIL
     Indication: Pulmonary hypertension
     Dosage: 8 MG, Q8H
  3. ORENITRAM [Suspect]
     Active Substance: TREPROSTINIL
  4. ORENITRAM [Suspect]
     Active Substance: TREPROSTINIL
     Indication: Pulmonary hypertension
  5. ORENITRAM [Suspect]
     Active Substance: TREPROSTINIL
  6. ORENITRAM [Suspect]
     Active Substance: TREPROSTINIL
     Indication: Pulmonary hypertension
  7. GABAPENTIN [Suspect]
     Active Substance: GABAPENTIN
     Indication: Pain in extremity
  8. GABAPENTIN [Suspect]
     Active Substance: GABAPENTIN
     Indication: Temporomandibular pain and dysfunction syndrome
  9. OXYCODONE [Concomitant]
     Active Substance: OXYCODONE
     Indication: Pain in extremity
  10. OXYCODONE [Concomitant]
     Active Substance: OXYCODONE
     Indication: Temporomandibular pain and dysfunction syndrome
  11. LYRICA [Concomitant]
     Active Substance: PREGABALIN
     Indication: Pain in extremity
  12. LYRICA [Concomitant]
     Active Substance: PREGABALIN
     Indication: Temporomandibular pain and dysfunction syndrome
  13. OXYGEN [Concomitant]
     Active Substance: OXYGEN
     Indication: Product used for unknown indication

REACTIONS (10)
  - Cardiac failure congestive [Recovering/Resolving]
  - Pain in extremity [Unknown]
  - Temporomandibular pain and dysfunction syndrome [Recovering/Resolving]
  - Pulmonary hypertension [Unknown]
  - Muscle twitching [Recovering/Resolving]
  - Off label use [Unknown]
  - Product administration interrupted [Recovered/Resolved]
  - Pain in jaw [Unknown]
  - Weight increased [Unknown]
  - Peripheral swelling [Unknown]

NARRATIVE: CASE EVENT DATE: 20240101
